FAERS Safety Report 4831833-5 (Version None)
Quarter: 2005Q4

REPORT INFORMATION
  Report Type: 
  Country: None (occurrence: None)
  Receive Date: 20051118
  Receipt Date: 20051111
  Transmission Date: 20060501
  Serious: Yes (Death, Other)
  Sender: FDA-Public Use
  Company Number: JP-BRISTOL-MYERS SQUIBB COMPANY-13178785

PATIENT
  Age: 79 Year
  Sex: Male

DRUGS (3)
  1. TAXOL [Suspect]
     Indication: GASTRIC CANCER
     Route: 042
     Dates: start: 20050913, end: 20050913
  2. RANDA [Suspect]
     Indication: GASTRIC CANCER
     Route: 042
     Dates: start: 20050913, end: 20050913
  3. FLUOROURACIL [Suspect]
     Indication: GASTRIC CANCER
     Route: 042
     Dates: start: 20050913, end: 20050916

REACTIONS (6)
  - ACIDOSIS [None]
  - BLOOD PRESSURE DECREASED [None]
  - BLOOD UREA INCREASED [None]
  - DISSEMINATED INTRAVASCULAR COAGULATION [None]
  - NAUSEA [None]
  - VOMITING [None]
